FAERS Safety Report 6250468-3 (Version None)
Quarter: 2009Q2

REPORT INFORMATION
  Report Type: 
  Country: None (occurrence: None)
  Receive Date: 20090630
  Receipt Date: 20090626
  Transmission Date: 20091009
  Serious: Yes (Other)
  Sender: FDA-Public Use
  Company Number: JP-JNJFOC-20090503398

PATIENT
  Sex: Female

DRUGS (3)
  1. ITRIZOLE [Suspect]
     Indication: ONYCHOMYCOSIS
     Route: 048
  2. CONIEL [Interacting]
     Indication: HYPERTENSION
     Route: 048
  3. ALACEPUL [Concomitant]
     Indication: HYPERTENSION
     Route: 048

REACTIONS (5)
  - DISCOMFORT [None]
  - DRUG INTERACTION [None]
  - HYPOTENSION [None]
  - MUSCLE RIGIDITY [None]
  - PYREXIA [None]
